FAERS Safety Report 8444870-9 (Version None)
Quarter: 2012Q2

REPORT INFORMATION
  Report Type: 
  Country: None (occurrence: None)
  Receive Date: 20120618
  Receipt Date: 20120614
  Transmission Date: 20120825
  Serious: Yes (Death, Hospitalization)
  Sender: FDA-Public Use
  Company Number: PHHY2012MX051699

PATIENT
  Sex: Female

DRUGS (1)
  1. ZOLEDRONOC ACID [Suspect]
     Indication: OSTEOPOROSIS
     Dosage: 5 MG/ 100 ML/ ONCE A YEAR
     Route: 042
     Dates: start: 20100423

REACTIONS (3)
  - PANCREATIC CARCINOMA [None]
  - RESPIRATORY ARREST [None]
  - YELLOW SKIN [None]
